FAERS Safety Report 12847146 (Version 2)
Quarter: 2016Q4

REPORT INFORMATION
  Report Type: Spontaneous
  Country: CA (occurrence: CA)
  Receive Date: 20161014
  Receipt Date: 20161212
  Transmission Date: 20170207
  Serious: Yes (Death, Other)
  Sender: FDA-Public Use
  Company Number: CA-SA-2016SA186806

PATIENT
  Age: 32 Year
  Sex: Female

DRUGS (2)
  1. NOVORAPID [Suspect]
     Active Substance: INSULIN ASPART
     Indication: TYPE 2 DIABETES MELLITUS
     Dosage: FREQUENCY: BEFORE MEAL
     Route: 065
  2. LANTUS [Suspect]
     Active Substance: INSULIN GLARGINE
     Indication: TYPE 2 DIABETES MELLITUS
     Route: 058

REACTIONS (12)
  - Ankle fracture [Unknown]
  - Hypoglycaemia [Unknown]
  - Sepsis [Unknown]
  - Poisoning [Unknown]
  - Pulmonary embolism [Unknown]
  - Somnolence [Unknown]
  - Accidental death [Fatal]
  - Acute coronary syndrome [Unknown]
  - Pancreatitis [Unknown]
  - Impaired healing [Unknown]
  - Pain [Unknown]
  - Thrombophlebitis [Unknown]

NARRATIVE: CASE EVENT DATE: 201307
